FAERS Safety Report 12233741 (Version 1)
Quarter: 2016Q2

REPORT INFORMATION
  Report Type: Spontaneous
  Country: US (occurrence: None)
  Receive Date: 20160401
  Receipt Date: 20160401
  Transmission Date: 20160815
  Serious: No
  Sender: FDA-Public Use
  Company Number: None

PATIENT
  Age: 49 Year
  Sex: Female

DRUGS (8)
  1. IBUPROFEN. [Concomitant]
     Active Substance: IBUPROFEN
  2. KEFLEX [Concomitant]
     Active Substance: CEPHALEXIN
  3. AMITRIPTYLINE [Concomitant]
     Active Substance: AMITRIPTYLINE
  4. BACLOFEN. [Concomitant]
     Active Substance: BACLOFEN
  5. COPAXONE [Suspect]
     Active Substance: GLATIRAMER ACETATE
     Indication: MULTIPLE SCLEROSIS
     Route: 058
     Dates: start: 20150825
  6. TRAMADOL. [Concomitant]
     Active Substance: TRAMADOL
  7. PREDNISONE. [Concomitant]
     Active Substance: PREDNISONE
  8. VALACYCLOVIR [Concomitant]
     Active Substance: VALACYCLOVIR HYDROCHLORIDE

REACTIONS (3)
  - Deafness [None]
  - Ear pain [None]
  - Brain neoplasm [None]

NARRATIVE: CASE EVENT DATE: 201603
